FAERS Safety Report 9633233 (Version 1)
Quarter: 2013Q4

REPORT INFORMATION
  Report Type: Spontaneous
  Country: US (occurrence: None)
  Receive Date: 20131018
  Receipt Date: 20131018
  Transmission Date: 20140711
  Serious: Yes (Other)
  Sender: FDA-Public Use
  Company Number: None

PATIENT
  Age: 60 Year
  Sex: Female
  Weight: 115.21 kg

DRUGS (1)
  1. SYNTHROID 112 MCG [Suspect]
     Indication: HYPOTHYROIDISM
     Dosage: 1 PILL
     Route: 048
     Dates: start: 20130918, end: 20131001

REACTIONS (6)
  - Headache [None]
  - Nausea [None]
  - Job dissatisfaction [None]
  - Sleep disorder [None]
  - Mental impairment [None]
  - Product substitution issue [None]
